FAERS Safety Report 20169375 (Version 1)
Quarter: 2021Q4

REPORT INFORMATION
  Report Type: Spontaneous
  Country: US (occurrence: None)
  Receive Date: 20211210
  Receipt Date: 20211210
  Transmission Date: 20220304
  Serious: Yes (Hospitalization, Other)
  Sender: FDA-Public Use
  Company Number: PR-MLMSERVICE-20211126-3242815-1

PATIENT
  Age: 87 Year
  Sex: Male

DRUGS (1)
  1. ALENDRONIC ACID [Suspect]
     Active Substance: ALENDRONIC ACID
     Indication: Osteoporosis
     Dosage: UNKNOWN
     Route: 065

REACTIONS (6)
  - Gastrointestinal mucosal exfoliation [Recovered/Resolved]
  - Oesophageal obstruction [Recovered/Resolved]
  - Oesophagitis [Recovered/Resolved]
  - Dehydration [Recovered/Resolved]
  - Vomiting [Recovered/Resolved]
  - Acute kidney injury [Recovered/Resolved]
